FAERS Safety Report 24533868 (Version 1)
Quarter: 2024Q4

REPORT INFORMATION
  Report Type: Spontaneous
  Country: CN (occurrence: CN)
  Receive Date: 20241022
  Receipt Date: 20241022
  Transmission Date: 20250114
  Serious: Yes (Death)
  Sender: CHEPLAPHARM
  Company Number: CN-CHEPLA-2024013168

PATIENT
  Age: 54 Year
  Sex: Male

DRUGS (15)
  1. GANCICLOVIR [Suspect]
     Active Substance: GANCICLOVIR
     Indication: Encephalitis cytomegalovirus
     Dosage: Q12H?DAILY DOSE: 10 MILLIGRAM/KG
  2. FOSCARNET [Concomitant]
     Active Substance: FOSCARNET
     Indication: Cytomegalovirus infection reactivation
     Dosage: Q8H?DAILY DOSE: 320 MILLIGRAM/KG
  3. FOSCARNET [Concomitant]
     Active Substance: FOSCARNET
     Indication: Cytomegalovirus infection reactivation
  4. BUSULFAN [Concomitant]
     Active Substance: BUSULFAN
     Dosage: FOR 3 DAYS?DAILY DOSE: 3.2 MILLIGRAM/KG
  5. CYCLOPHOSPHAMIDE [Concomitant]
     Active Substance: CYCLOPHOSPHAMIDE
     Dosage: 1.8 G/M2 /DAY FOR TWO DAYS
  6. ETOPOSIDE [Concomitant]
     Active Substance: ETOPOSIDE
     Dosage: 20 MG/KG/DAY FOR TWO DAYS?DAILY DOSE: 20 MILLIGRAM/KG
  7. Rabbit antithymocyte globlulin [Concomitant]
     Dosage: 2.5 MG/KG/DAY FOR FOUR DAYS?DAILY DOSE: 2.5 MILLIGRAM/KG
  8. CYCLOSPORINE [Concomitant]
     Active Substance: CYCLOSPORINE
     Indication: Prophylaxis against graft versus host disease
  9. METHOTREXATE [Concomitant]
     Active Substance: METHOTREXATE
     Indication: Prophylaxis against graft versus host disease
     Dosage: SHORT-COURSE
  10. MYCOPHENOLATE MOFETIL [Concomitant]
     Active Substance: MYCOPHENOLATE MOFETIL
     Indication: Prophylaxis against graft versus host disease
  11. METHYLPREDNISOLONE [Concomitant]
     Active Substance: METHYLPREDNISOLONE
     Indication: Engraftment syndrome
     Dosage: DAILY DOSE: 1 MILLIGRAM/KG
  12. METHYLPREDNISOLONE [Concomitant]
     Active Substance: METHYLPREDNISOLONE
     Indication: Engraftment syndrome
     Dosage: DAILY DOSE: 2 MILLIGRAM/KG
  13. RITUXIMAB [Concomitant]
     Active Substance: RITUXIMAB
     Indication: Epstein-Barr viraemia
     Dosage: LOW DOSE OF RITUXIMAB (100 MG QW FOR TWO DOSES)
  14. BASILIXIMAB [Concomitant]
     Active Substance: BASILIXIMAB
     Dosage: 20 MG WAS GIVEN ON DAYS 33,36,40, AND 47
  15. RUXOLITINIB [Concomitant]
     Active Substance: RUXOLITINIB
     Dosage: DAILY DOSE: 10 MILLIGRAM

REACTIONS (1)
  - Respiratory failure [Fatal]
